FAERS Safety Report 20077013 (Version 1)
Quarter: 2021Q4

REPORT INFORMATION
  Report Type: Spontaneous
  Country: US (occurrence: US)
  Receive Date: 20211116
  Receipt Date: 20211116
  Transmission Date: 20220304
  Serious: Yes (Hospitalization, Other)
  Sender: FDA-Public Use
  Company Number: US-INCYTE CORPORATION-2021IN010578

PATIENT

DRUGS (3)
  1. JAKAFI [Suspect]
     Active Substance: RUXOLITINIB
     Indication: Pancytopenia
     Dosage: 10 MILLIGRAM, BID
     Route: 048
     Dates: start: 20211026
  2. JAKAFI [Suspect]
     Active Substance: RUXOLITINIB
     Indication: Endocarditis
     Dosage: 20 MILLIGRAM, BID
     Route: 048
     Dates: start: 20211028
  3. JAKAFI [Suspect]
     Active Substance: RUXOLITINIB
     Indication: Haemophagocytic lymphohistiocytosis

REACTIONS (3)
  - Pancytopenia [Unknown]
  - Hyperhidrosis [Unknown]
  - Off label use [Unknown]

NARRATIVE: CASE EVENT DATE: 20211026
